FAERS Safety Report 25225118 (Version 1)
Quarter: 2025Q2

REPORT INFORMATION
  Report Type: Report from Study
  Country: US (occurrence: US)
  Receive Date: 20250422
  Receipt Date: 20250422
  Transmission Date: 20250717
  Serious: No
  Sender: SUNOVION
  Company Number: US-SUMITOMO PHARMA SWITZERLAND GMBH-2025SPA003724

PATIENT

DRUGS (10)
  1. ORGOVYX [Suspect]
     Active Substance: RELUGOLIX
     Indication: Prostate cancer
     Dosage: 360 MG, SINGLE
     Route: 048
     Dates: start: 20250319, end: 20250319
  2. ORGOVYX [Suspect]
     Active Substance: RELUGOLIX
     Dosage: 120 MG, QD
     Route: 048
     Dates: start: 20250320
  3. Multivitamin gummy [Concomitant]
     Route: 065
  4. ATENOLOL [Concomitant]
     Active Substance: ATENOLOL
     Route: 065
  5. HERBALS [Concomitant]
     Active Substance: HERBALS
     Route: 065
  6. ATORVASTATIN [Concomitant]
     Active Substance: ATORVASTATIN
     Route: 065
  7. TAMSULOSIN [Concomitant]
     Active Substance: TAMSULOSIN
     Route: 065
  8. ASPIRIN [Concomitant]
     Active Substance: ASPIRIN
     Route: 065
  9. LISINOPRIL [Concomitant]
     Active Substance: LISINOPRIL
     Route: 065
  10. VITAMIN D3 [Concomitant]
     Active Substance: CHOLECALCIFEROL
     Route: 065

REACTIONS (1)
  - Hot flush [Unknown]

NARRATIVE: CASE EVENT DATE: 20250323
